FAERS Safety Report 25306118 (Version 2)
Quarter: 2025Q2

REPORT INFORMATION
  Report Type: Spontaneous
  Country: US (occurrence: US)
  Receive Date: 20250513
  Receipt Date: 20250527
  Transmission Date: 20250716
  Serious: Yes (Other)
  Sender: AUROBINDO
  Company Number: US-MLMSERVICE-20250424-PI486957-00246-1

PATIENT
  Age: 31 Year
  Sex: Female

DRUGS (7)
  1. OLANZAPINE [Suspect]
     Active Substance: OLANZAPINE
     Indication: Adjuvant therapy
     Route: 065
  2. OLANZAPINE [Suspect]
     Active Substance: OLANZAPINE
     Indication: Antipsychotic therapy
  3. METHIMAZOLE [Concomitant]
     Active Substance: METHIMAZOLE
     Indication: Graves^ disease
     Route: 065
  4. ARIPIPRAZOLE [Concomitant]
     Active Substance: ARIPIPRAZOLE
     Indication: Graves^ disease
     Dosage: 5 MILLIGRAM, ONCE A DAY
     Route: 065
  5. ARIPIPRAZOLE [Concomitant]
     Active Substance: ARIPIPRAZOLE
     Dosage: 15 MILLIGRAM, ONCE A DAY
     Route: 065
  6. METHIMAZOLE [Concomitant]
     Active Substance: METHIMAZOLE
     Indication: Graves^ disease
     Dosage: 10 MILLIGRAM, ONCE A DAY
     Route: 065
  7. Proponol [Concomitant]
     Indication: Product used for unknown indication
     Dosage: 20 MILLIGRAM, FOUR TIMES/DAY
     Route: 065

REACTIONS (1)
  - Leukopenia [Unknown]
